FAERS Safety Report 12161786 (Version 1)
Quarter: 2016Q1

REPORT INFORMATION
  Report Type: Spontaneous
  Country: DE (occurrence: DE)
  Receive Date: 20160309
  Receipt Date: 20160309
  Transmission Date: 20160526
  Serious: Yes (Other)
  Sender: FDA-Public Use
  Company Number: DE-009507513-1603DEU003027

PATIENT
  Age: 68 Year
  Sex: Male

DRUGS (1)
  1. DIPROGENTA [Suspect]
     Active Substance: BETAMETHASONE DIPROPIONATE\GENTAMICIN SULFATE
     Indication: OTITIS EXTERNA
     Dosage: THE PATIENT PUT SMALL CLOTH MOISTENED WITH DIPROGENTA IN HIS EAR CANAL
     Route: 001
     Dates: start: 20160210, end: 2016

REACTIONS (3)
  - Product use issue [Unknown]
  - Drug prescribing error [Unknown]
  - Deafness [Not Recovered/Not Resolved]

NARRATIVE: CASE EVENT DATE: 20160210
